FAERS Safety Report 9082348 (Version 1)
Quarter: 2013Q1

REPORT INFORMATION
  Report Type: Report from Study
  Country: US (occurrence: US)
  Receive Date: 20130130
  Receipt Date: 20130130
  Transmission Date: 20140127
  Serious: No
  Sender: FDA-Public Use
  Company Number: US-ABBOTT-12P-163-0952577-00

PATIENT
  Age: 50 None
  Sex: Male
  Weight: 102.15 kg

DRUGS (5)
  1. HUMIRA 40 MG/0.8 ML PEN [Suspect]
     Indication: RHEUMATOID ARTHRITIS
  2. FOLIC ACID [Concomitant]
     Indication: PRODUCT USED FOR UNKNOWN INDICATION
  3. CRESTOR [Concomitant]
     Indication: BLOOD CHOLESTEROL INCREASED
  4. METHOTREXATE [Concomitant]
     Indication: RHEUMATOID ARTHRITIS
     Dosage: 6 PILLS ONE WEEK, 4 THE WEEK OF THE HUMIRA INJECTION.
  5. MOBIC [Concomitant]
     Indication: RHEUMATOID ARTHRITIS

REACTIONS (5)
  - Abasia [Unknown]
  - Joint crepitation [Not Recovered/Not Resolved]
  - Joint crepitation [Not Recovered/Not Resolved]
  - Ankle fracture [Unknown]
  - Ankle fracture [Unknown]
